FAERS Safety Report 6137856-0 (Version None)
Quarter: 2009Q1

REPORT INFORMATION
  Report Type: 
  Country: None (occurrence: None)
  Receive Date: 20090326
  Receipt Date: 20090313
  Transmission Date: 20090719
  Serious: Yes (Death, Hospitalization)
  Sender: FDA-Public Use
  Company Number: DEP_00251_2009

PATIENT
  Age: 47 Year
  Sex: Male
  Weight: 67 kg

DRUGS (2)
  1. METFORMIN HCL [Suspect]
     Indication: TYPE 2 DIABETES MELLITUS
     Dosage: (500 MG BID)
  2. GLYBURIDE [Concomitant]

REACTIONS (12)
  - BLOOD GLUCOSE INCREASED [None]
  - CARDIAC ARREST [None]
  - CONTRAST MEDIA REACTION [None]
  - HYPOTENSION [None]
  - INTRACRANIAL ANEURYSM [None]
  - LACTIC ACIDOSIS [None]
  - METABOLIC ACIDOSIS [None]
  - NEPHROPATHY TOXIC [None]
  - POST PROCEDURAL COMPLICATION [None]
  - RENAL FAILURE [None]
  - RESPIRATORY DISTRESS [None]
  - SUBARACHNOID HAEMORRHAGE [None]
